FAERS Safety Report 7637585 (Version 10)
Quarter: 2016Q4

REPORT INFORMATION
  Report Type: Spontaneous
  Country: US (occurrence: US)
  Receive Date: 20101022
  Receipt Date: 20161101
  Transmission Date: 20170207
  Serious: Yes (Life-Threatening, Disabling, Other)
  Sender: FDA-Public Use
  Company Number: US-NAPPMUNDI-USA-2010-0049143

PATIENT
  Age: 23 Year
  Sex: Male

DRUGS (2)
  1. ALCOHOL. [Suspect]
     Active Substance: ALCOHOL
     Indication: PRODUCT USED FOR UNKNOWN INDICATION
     Dosage: UNKNOWN
     Route: 048
  2. OXYCONTIN [Suspect]
     Active Substance: OXYCODONE HYDROCHLORIDE
     Indication: DRUG ABUSE
     Dosage: UNK
     Route: 048

REACTIONS (15)
  - Drug dependence [Unknown]
  - Brain injury [Unknown]
  - Abasia [Unknown]
  - Unresponsive to stimuli [Unknown]
  - Blindness [Unknown]
  - Accidental overdose [Unknown]
  - Organ failure [Unknown]
  - Myocardial infarction [Unknown]
  - Drug abuse [Unknown]
  - Cerebrovascular accident [Unknown]
  - Coma [Recovered/Resolved]
  - Paralysis [Unknown]
  - Aphasia [Unknown]
  - Quadriplegia [Unknown]
  - Respiratory arrest [Recovered/Resolved]

NARRATIVE: CASE EVENT DATE: 2005
